FAERS Safety Report 6130081-9 (Version None)
Quarter: 2009Q1

REPORT INFORMATION
  Report Type: 
  Country: None (occurrence: None)
  Receive Date: 20090324
  Receipt Date: 20090313
  Transmission Date: 20090719
  Serious: Yes (Hospitalization)
  Sender: FDA-Public Use
  Company Number: JP-BRISTOL-MYERS SQUIBB COMPANY-14552020

PATIENT
  Age: 27 Year
  Sex: Male

DRUGS (5)
  1. ABILIFY [Suspect]
     Indication: SCHIZOPHRENIA
     Dosage: REG1:18MG01AUG08-28AUG(28);REG2:24MG29AUG08-14JAN09(139);REG3:21MG15JAN09-18FEB09(35)RE4:24MG19FEB9
     Route: 048
     Dates: start: 20080718
  2. LEXOTAN [Concomitant]
     Dates: start: 20080717
  3. BENZALIN [Concomitant]
     Dates: start: 20080717
  4. AMOBAN [Concomitant]
     Dates: start: 20080717
  5. RESLIN [Concomitant]
     Dates: start: 20080717

REACTIONS (3)
  - ANXIETY [None]
  - IRRITABILITY [None]
  - PSYCHIATRIC SYMPTOM [None]
